FAERS Safety Report 15345489 (Version 1)
Quarter: 2018Q3

REPORT INFORMATION
  Report Type: Report from Study
  Country: JP (occurrence: JP)
  Receive Date: 20180903
  Receipt Date: 20180903
  Transmission Date: 20181010
  Serious: Yes (Other)
  Sender: FDA-Public Use
  Company Number: JP-BEH-2018094467

PATIENT
  Age: 81 Year
  Sex: Female
  Weight: 41 kg

DRUGS (15)
  1. WARFARIN [Suspect]
     Active Substance: WARFARIN
     Indication: CEREBRAL INFARCTION
     Dosage: 2 MG, UNK
     Route: 065
     Dates: start: 20180424
  2. ARGAMATE [Concomitant]
     Active Substance: CALCIUM POLYSTYRENE SULFONATE
     Route: 048
  3. SENNOSIDE                          /00571901/ [Concomitant]
     Active Substance: SENNOSIDES A AND B
     Route: 048
  4. SODIUM BICARBONATE. [Concomitant]
     Active Substance: SODIUM BICARBONATE
     Route: 048
  5. FUROSEMIDE. [Concomitant]
     Active Substance: FUROSEMIDE
     Route: 048
  6. CARVEDILOL. [Concomitant]
     Active Substance: CARVEDILOL
     Route: 048
  7. BERIPLEX P/N [Suspect]
     Active Substance: COAGULATION FACTOR IX HUMAN\COAGULATION FACTOR VII HUMAN\COAGULATION FACTOR X HUMAN\PROTEIN C\PROTEIN S HUMAN\PROTHROMBIN
     Indication: SURGERY
     Dosage: 2000 IU, UNK
     Route: 042
     Dates: start: 20180507
  8. FERRUM                             /00023505/ [Concomitant]
     Route: 048
  9. WARFARIN [Suspect]
     Active Substance: WARFARIN
     Dosage: 1 MG, UNK
     Route: 048
     Dates: start: 20180508
  10. CEFAZOLIN SODIUM. [Concomitant]
     Active Substance: CEFAZOLIN SODIUM
     Dosage: UNK
     Route: 065
     Dates: start: 20180525, end: 20180526
  11. REMITCH [Concomitant]
     Active Substance: NALFURAFINE HYDROCHLORIDE
     Route: 048
  12. SODIUM RABEPRAZOLE [Concomitant]
     Active Substance: RABEPRAZOLE SODIUM
     Route: 048
  13. CELECOX [Concomitant]
     Active Substance: CELECOXIB
     Route: 048
  14. CALBLOCK [Concomitant]
     Active Substance: AZELNIDIPINE
     Route: 048
  15. BENIDIPINE HYDROCHLORIDE [Concomitant]
     Active Substance: BENIDIPINE HYDROCHLORIDE
     Route: 048

REACTIONS (1)
  - Cerebral infarction [Recovered/Resolved]

NARRATIVE: CASE EVENT DATE: 20180601
